FAERS Safety Report 9175427 (Version 1)
Quarter: 2013Q1

REPORT INFORMATION
  Report Type: Spontaneous
  Country: US (occurrence: US)
  Receive Date: 20130320
  Receipt Date: 20130320
  Transmission Date: 20140127
  Serious: No
  Sender: FDA-Public Use
  Company Number: US-009507513-1303USA009684

PATIENT
  Sex: Female

DRUGS (1)
  1. DR. SCHOLL^S [Suspect]
     Indication: HYPERKERATOSIS
     Dosage: UNK, UNKNOWN
     Route: 061
     Dates: start: 201211

REACTIONS (2)
  - Application site exfoliation [Unknown]
  - Wound [Unknown]
